FAERS Safety Report 9169034 (Version 2)
Quarter: 2013Q2

REPORT INFORMATION
  Report Type: Spontaneous
  Country: US (occurrence: US)
  Receive Date: 20130318
  Receipt Date: 20130410
  Transmission Date: 20140414
  Serious: Yes (Other)
  Sender: FDA-Public Use
  Company Number: US-ASTRAZENECA-2012SE22063

PATIENT
  Age: 61 Year
  Sex: Female
  Weight: 42.6 kg

DRUGS (9)
  1. SYMBICORT PMDI [Suspect]
     Indication: ASTHMA
     Dosage: 160/4.5 MCG 2 PUFFS EVERY DAY
     Route: 055
     Dates: start: 2010
  2. SYMBICORT PMDI [Suspect]
     Indication: ASTHMA
     Dosage: 320 MCG 2 PUFFS BID
     Route: 055
     Dates: start: 2012
  3. NUMEROUS MEDICATIONS [Concomitant]
  4. SYNTHROID [Concomitant]
     Indication: THYROID DISORDER
  5. ASPIRIN [Concomitant]
  6. KLONOPIN [Concomitant]
     Indication: ANXIETY
  7. CELEXA [Concomitant]
     Indication: DEPRESSION
  8. BENTYL [Concomitant]
     Indication: GASTROINTESTINAL DISORDER
  9. LOMOTIL [Concomitant]
     Indication: GASTROINTESTINAL DISORDER

REACTIONS (6)
  - Cataract [Not Recovered/Not Resolved]
  - Lip blister [Not Recovered/Not Resolved]
  - Cheilitis [Unknown]
  - Visual impairment [Unknown]
  - Lip swelling [Not Recovered/Not Resolved]
  - Off label use [Unknown]
